FAERS Safety Report 6720532-0 (Version None)
Quarter: 2010Q2

REPORT INFORMATION
  Report Type: 
  Country: None (occurrence: None)
  Receive Date: 20100511
  Receipt Date: 20100511
  Transmission Date: 20101027
  Serious: Yes (Hospitalization)
  Sender: FDA-Public Use
  Company Number: None

PATIENT
  Sex: Female
  Weight: 57.6 kg

DRUGS (1)
  1. CISPLATIN [Suspect]
     Dosage: 165 MG
     Dates: end: 20100428

REACTIONS (5)
  - DEHYDRATION [None]
  - DRUG INTOLERANCE [None]
  - HYPOKALAEMIA [None]
  - RENAL DISORDER [None]
  - VOMITING [None]
